FAERS Safety Report 6313497-7 (Version None)
Quarter: 2009Q3

REPORT INFORMATION
  Report Type: 
  Country: None (occurrence: None)
  Receive Date: 20090814
  Receipt Date: 20090804
  Transmission Date: 20100115
  Serious: Yes (Other)
  Sender: FDA-Public Use
  Company Number: GXKR2009KR08858

PATIENT
  Age: 56 Year
  Sex: Female

DRUGS (7)
  1. DICLOFENAC SODIUM [Suspect]
     Indication: PAIN MANAGEMENT
     Dosage: FOUR TIMES DAILY, TOPICAL
     Route: 061
  2. DICLOFENAC SODIUM [Suspect]
     Indication: PROCEDURAL PAIN
     Dosage: FOUR TIMES DAILY, TOPICAL
     Route: 061
  3. PREDNISOLONE [Suspect]
     Indication: PHOTOREFRACTIVE KERATECTOMY
     Dosage: POSTOPERATIVELY, TOPICAL
     Route: 061
  4. ALCOHOL (ETHANOL) [Suspect]
     Indication: PHOTOREFRACTIVE KERATECTOMY
     Dosage: 30 SECONDS PERIOPERATIVELY,
  5. SALT SOLUTIONS (NO INGREDIENTS/SUBSTANCES) [Concomitant]
  6. LEVOFLOXACIN (LEVOFLOXACIN), 0.1 % [Concomitant]
  7. HYALURONIC ACID (HYALURONIC ACID) [Concomitant]

REACTIONS (4)
  - HYPOAESTHESIA [None]
  - KERATITIS [None]
  - KERATOPATHY [None]
  - VISUAL ACUITY REDUCED [None]
